FAERS Safety Report 13239944 (Version 16)
Quarter: 2019Q4

REPORT INFORMATION
  Report Type: Spontaneous
  Country: US (occurrence: US)
  Receive Date: 20170216
  Receipt Date: 20191202
  Transmission Date: 20200122
  Serious: Yes (Other)
  Sender: FDA-Public Use
  Company Number: US-PFIZER INC-2017067913

PATIENT
  Age: 79 Year
  Sex: Female
  Weight: 77 kg

DRUGS (18)
  1. LYRICA [Suspect]
     Active Substance: PREGABALIN
     Dosage: 1 DF, 1X/DAY
     Dates: start: 2019, end: 2019
  2. LYRICA [Suspect]
     Active Substance: PREGABALIN
     Indication: ESSENTIAL HYPERTENSION
     Dosage: 50 MG, 1X/DAY (MORNING)
     Route: 048
     Dates: start: 2014, end: 2014
  3. LYRICA [Suspect]
     Active Substance: PREGABALIN
     Dosage: 1 DF, DAILY (ONE OR 2 A DAY)
     Route: 048
     Dates: start: 201811
  4. LYRICA [Suspect]
     Active Substance: PREGABALIN
     Dosage: 400 MG, DAILY (TAKING 8 OF THE 50 MG A DAY)
     Dates: start: 2019, end: 2019
  5. LYRICA [Suspect]
     Active Substance: PREGABALIN
     Dosage: 50 MG, 2X/DAY
     Route: 048
     Dates: start: 2019, end: 2019
  6. LYRICA [Suspect]
     Active Substance: PREGABALIN
     Dosage: UNK
     Dates: start: 2019
  7. GABAPENTIN. [Concomitant]
     Active Substance: GABAPENTIN
     Dosage: 600 MG, 1X/DAY
  8. LYRICA [Suspect]
     Active Substance: PREGABALIN
     Indication: DIABETIC NEUROPATHY
     Dosage: 50 MG, UNK
     Dates: start: 2014
  9. LYRICA [Suspect]
     Active Substance: PREGABALIN
     Dosage: 50 MG, 1X/DAY (MORNING)
     Dates: start: 2019, end: 2019
  10. LYRICA [Suspect]
     Active Substance: PREGABALIN
     Dosage: 200 MG, 2X/DAY (MORNING)
     Dates: start: 2019, end: 2019
  11. LYRICA [Suspect]
     Active Substance: PREGABALIN
     Indication: NEUROPATHY PERIPHERAL
     Dosage: 600 MG, DAILY (2 CAPSULES IN THE AM AND 1 IN THE PM)
     Route: 048
  12. GABAPENTIN. [Concomitant]
     Active Substance: GABAPENTIN
     Indication: NEUROPATHY PERIPHERAL
     Dosage: 600 MG, 3X/DAY
     Route: 048
  13. GABAPENTIN. [Concomitant]
     Active Substance: GABAPENTIN
     Dosage: 2 DF, 1X/DAY (IN THE EVENING)
  14. LYRICA [Suspect]
     Active Substance: PREGABALIN
     Dosage: 1 DF, 1X/DAY
     Route: 048
     Dates: start: 201901, end: 2019
  15. LYRICA [Suspect]
     Active Substance: PREGABALIN
     Dosage: 100 MG, 1X/DAY
     Dates: start: 2019, end: 2019
  16. GABAPENTIN. [Concomitant]
     Active Substance: GABAPENTIN
     Dosage: 600 MG, 1X/DAY (1 IN THE EVENING)
     Route: 048
  17. LYRICA [Suspect]
     Active Substance: PREGABALIN
     Dosage: 600 MG, DAILY (2 CAPSULES IN THE AM AND 1 IN THE PM)
     Route: 048
     Dates: start: 2019, end: 2019
  18. GABAPENTIN. [Concomitant]
     Active Substance: GABAPENTIN
     Dosage: 1 DF, 1X/DAY (NIGHT)

REACTIONS (22)
  - Cystitis [Not Recovered/Not Resolved]
  - Intervertebral disc degeneration [Unknown]
  - Malaise [Not Recovered/Not Resolved]
  - Nervousness [Unknown]
  - Arthralgia [Unknown]
  - Drug dependence [Unknown]
  - Renal disorder [Unknown]
  - Pain [Recovered/Resolved]
  - Pain in extremity [Unknown]
  - Intentional product use issue [Unknown]
  - Muscle spasms [Unknown]
  - Memory impairment [Unknown]
  - Facet joint syndrome [Unknown]
  - Intentional product misuse [Unknown]
  - Product prescribing error [Unknown]
  - Back pain [Unknown]
  - Spinal stenosis [Unknown]
  - Drug ineffective [Unknown]
  - Insomnia [Not Recovered/Not Resolved]
  - Gait disturbance [Unknown]
  - Dry mouth [Unknown]
  - Bursitis [Unknown]

NARRATIVE: CASE EVENT DATE: 2018
